FAERS Safety Report 4470062-4 (Version None)
Quarter: 2004Q3

REPORT INFORMATION
  Report Type: 
  Country: None (occurrence: None)
  Receive Date: 20040910
  Receipt Date: 20040616
  Transmission Date: 20050211
  Serious: No
  Sender: FDA-Public Use
  Company Number: 2004219758US

PATIENT
  Age: 65 Year
  Sex: Male

DRUGS (1)
  1. BEXTRA [Suspect]
     Dosage: 10 MG, QD
     Dates: start: 20040616, end: 20040616

REACTIONS (3)
  - DYSPEPSIA [None]
  - HEAD DISCOMFORT [None]
  - NERVOUSNESS [None]
